FAERS Safety Report 5725934-7 (Version None)
Quarter: 2008Q2

REPORT INFORMATION
  Report Type: 
  Country: None (occurrence: None)
  Receive Date: 20080501
  Receipt Date: 20080501
  Transmission Date: 20081010
  Serious: No
  Sender: FDA-Public Use
  Company Number: None

PATIENT
  Age: 11 Year
  Sex: Female

DRUGS (3)
  1. AZITHROMYCIN [Suspect]
     Dates: start: 20041225, end: 20050101
  2. ADVIL [Concomitant]
  3. TYLENOL COLD REMEDY [Concomitant]

REACTIONS (40)
  - ASTHENIA [None]
  - BACTERIAL INFECTION [None]
  - BLOOD CALCIUM INCREASED [None]
  - BLOOD IMMUNOGLOBULIN A DECREASED [None]
  - BLOOD IMMUNOGLOBULIN G DECREASED [None]
  - BLOOD IMMUNOGLOBULIN M DECREASED [None]
  - BRONCHIECTASIS [None]
  - CHOLESTASIS [None]
  - CONJUNCTIVAL DISORDER [None]
  - CONJUNCTIVITIS [None]
  - CORNEAL ABRASION [None]
  - COUGH [None]
  - EYELID OEDEMA [None]
  - HAEMOPTYSIS [None]
  - HAEMORRHAGE [None]
  - HEPATIC STEATOSIS [None]
  - HEPATITIS CHOLESTATIC [None]
  - HYPERCALCAEMIA [None]
  - ILL-DEFINED DISORDER [None]
  - INTERNATIONAL NORMALISED RATIO INCREASED [None]
  - KAWASAKI'S DISEASE [None]
  - LEUKOCYTOSIS [None]
  - LIVER INJURY [None]
  - MALNUTRITION [None]
  - MUCOSAL EXFOLIATION [None]
  - MUCOUS MEMBRANE DISORDER [None]
  - MULTI-ORGAN FAILURE [None]
  - OBLITERATIVE BRONCHIOLITIS [None]
  - ORAL INTAKE REDUCED [None]
  - PHARYNGITIS [None]
  - PNEUMONIA [None]
  - RESPIRATORY DISORDER [None]
  - RESPIRATORY FAILURE [None]
  - SCARLET FEVER [None]
  - STEVENS-JOHNSON SYNDROME [None]
  - VANISHING BILE DUCT SYNDROME [None]
  - VIRAL INFECTION [None]
  - VITAMIN D DEFICIENCY [None]
  - VULVOVAGINAL MYCOTIC INFECTION [None]
  - WEIGHT DECREASED [None]
